FAERS Safety Report 16584187 (Version 1)
Quarter: 2019Q3

REPORT INFORMATION
  Report Type: Spontaneous
  Country: US (occurrence: US)
  Receive Date: 20190603
  Receipt Date: 20190603
  Transmission Date: 20191004
  Serious: Yes (Disabling, Other)
  Sender: FDA-Public Use
  Company Number: None

PATIENT
  Age: 68 Year
  Sex: Female
  Weight: 68.04 kg

DRUGS (22)
  1. LOSARTAN POTASSIUM 50MG TABS [Suspect]
     Active Substance: LOSARTAN POTASSIUM
     Indication: HYPERTENSION
     Dosage: ?          QUANTITY:50 MG MILLIGRAM(S);?
     Route: 048
     Dates: end: 20190214
  2. EPIPEN [Concomitant]
     Active Substance: EPINEPHRINE
  3. ZINC. [Concomitant]
     Active Substance: ZINC
  4. VITAMINS C [Concomitant]
  5. MAGNESIUM [Concomitant]
     Active Substance: MAGNESIUM
  6. BENADRYL [Concomitant]
     Active Substance: DIPHENHYDRAMINE HYDROCHLORIDE
  7. CRANBERRY. [Concomitant]
     Active Substance: CRANBERRY
  8. L-ARGININE [Concomitant]
     Active Substance: ARGININE
  9. MULTIVITAMIN [Concomitant]
     Active Substance: VITAMINS
  10. OMEGA-3 FISH OIL [Concomitant]
     Active Substance: FISH OIL\OMEGA-3 FATTY ACIDS
  11. IODINE. [Concomitant]
     Active Substance: IODINE
  12. ZADITOR EYE DROPS [Concomitant]
  13. QUERCETIN [Concomitant]
     Active Substance: QUERCETIN
  14. PROBIOTICS [Concomitant]
     Active Substance: PROBIOTICS NOS
  15. PATADAY [Concomitant]
     Active Substance: OLOPATADINE HYDROCHLORIDE
  16. CALCIUM [Concomitant]
     Active Substance: CALCIUM
  17. VITAMIN E [Concomitant]
     Active Substance: .ALPHA.-TOCOPHEROL
  18. COQ10 [Concomitant]
     Active Substance: UBIDECARENONE
  19. DIGESTIVE ENZYMES [Concomitant]
     Active Substance: UNSPECIFIED INGREDIENT
  20. ZYRTEC [Concomitant]
     Active Substance: CETIRIZINE HYDROCHLORIDE
  21. VITAMINS D [Concomitant]
  22. HCI [Concomitant]

REACTIONS (6)
  - Weight decreased [None]
  - Therapeutic response changed [None]
  - Toxic skin eruption [None]
  - Rash [None]
  - Abdominal discomfort [None]
  - Hypophagia [None]

NARRATIVE: CASE EVENT DATE: 20160909
